FAERS Safety Report 4589944-8 (Version None)
Quarter: 2005Q1

REPORT INFORMATION
  Report Type: 
  Country: None (occurrence: None)
  Receive Date: 20050125
  Receipt Date: 20041202
  Transmission Date: 20050727
  Serious: No
  Sender: FDA-Public Use
  Company Number: USA040670999

PATIENT
  Age: 56 Year
  Sex: Female
  Weight: 53 kg

DRUGS (18)
  1. FORTEO [Suspect]
     Indication: OSTEOPOROSIS
     Dosage: 20 UG DAY
     Dates: start: 20040610
  2. ZYRTEC [Concomitant]
  3. ACETAMINOPHEN [Concomitant]
  4. ACIPHEX [Concomitant]
  5. BENGAY ORIGINAL FORMULA PAIN RELIEVING [Concomitant]
  6. CALCIUM WITH VITAMIN D [Concomitant]
  7. CITRACAL (CALCIUM CITRATE) [Concomitant]
  8. COLACE (DOCUSATE SODIUM) [Concomitant]
  9. PREMARIN [Concomitant]
  10. PREMARIN H-C VAGINAL CREAM [Concomitant]
  11. ESTRACE [Concomitant]
  12. VITAMIN B50, NATURAL [Concomitant]
  13. OXYMETAZOLINE [Concomitant]
  14. NASAL SALINE NASAL (SODIUM CHLORIDE) [Concomitant]
  15. SUPHEDRINE (PSEUDOEPHEDRINE HYDROCHLORIDE) [Concomitant]
  16. VICKS VAPOR INHALER (LEVMETAMFETAMINE) [Concomitant]
  17. ROBITUSSIN DM [Concomitant]
  18. VISINE (TERYZOLINE HYDROCHLORIDE) [Concomitant]

REACTIONS (3)
  - BONE PAIN [None]
  - DYSPNOEA [None]
  - HYPOAESTHESIA [None]
